FAERS Safety Report 21784710 (Version 1)
Quarter: 2022Q4

REPORT INFORMATION
  Report Type: Other
  Country: SG (occurrence: SG)
  Receive Date: 20221227
  Receipt Date: 20221227
  Transmission Date: 20230113
  Serious: Yes (Other)
  Sender: FDA-Public Use
  Company Number: SG-NPI-000004

PATIENT
  Age: 49 Year
  Sex: Male

DRUGS (1)
  1. CALCIUM GLUCONATE [Suspect]
     Active Substance: CALCIUM GLUCONATE
     Indication: Hungry bone syndrome
     Route: 042

REACTIONS (3)
  - Catheter site cellulitis [Recovered/Resolved]
  - Eschar [Recovered/Resolved]
  - Cellulitis [Recovered/Resolved]
